FAERS Safety Report 9172063 (Version 2)
Quarter: 2013Q1

REPORT INFORMATION
  Report Type: Spontaneous
  Country: US (occurrence: US)
  Receive Date: 20130319
  Receipt Date: 20130325
  Transmission Date: 20140127
  Serious: No
  Sender: FDA-Public Use
  Company Number: CHPA2013US004825

PATIENT
  Sex: Female

DRUGS (1)
  1. VOLTAREN GEL [Suspect]
     Indication: BURSITIS
     Dosage: UNK, UNK
     Route: 061
     Dates: start: 2012, end: 2012

REACTIONS (1)
  - Drug ineffective for unapproved indication [Unknown]
